FAERS Safety Report 6428356-9 (Version None)
Quarter: 2009Q4

REPORT INFORMATION
  Report Type: 
  Country: None (occurrence: None)
  Receive Date: 20091104
  Receipt Date: 20091104
  Transmission Date: 20100525
  Serious: No
  Sender: FDA-Public Use
  Company Number: None

PATIENT
  Age: 60 Year
  Sex: Male

DRUGS (1)
  1. FUROSEMIDE [Suspect]
     Indication: VENOUS INSUFFICIENCY
     Dosage: 20 MG EVERY DAY PO
     Route: 048
     Dates: start: 20080618, end: 20090503

REACTIONS (5)
  - DEHYDRATION [None]
  - DRUG TOXICITY [None]
  - HYPOKALAEMIA [None]
  - RENAL FAILURE ACUTE [None]
  - RENAL TUBULAR NECROSIS [None]
